FAERS Safety Report 19208459 (Version 2)
Quarter: 2021Q3

REPORT INFORMATION
  Report Type: Report from Study
  Country: None (occurrence: NL)
  Receive Date: 20210504
  Receipt Date: 20210812
  Transmission Date: 20211014
  Serious: Yes (Other)
  Sender: FDA-Public Use
  Company Number: NL-ABBVIE-19S-114-2728209-00

PATIENT
  Sex: Male
  Weight: 65 kg

DRUGS (10)
  1. OXYCODONE [Concomitant]
     Active Substance: OXYCODONE
     Indication: MUSCULOSKELETAL DISCOMFORT
  2. DUODOPA [Suspect]
     Active Substance: CARBIDOPA\LEVODOPA
     Dosage: CD 3.7, DOSE DECREASED
     Route: 050
  3. LAXANS [Concomitant]
     Indication: ABNORMAL FAECES
  4. MADOPAR HBS [Concomitant]
     Active Substance: BENSERAZIDE HYDROCHLORIDE\LEVODOPA
     Indication: PARKINSON^S DISEASE
  5. MACROGOL [Concomitant]
     Active Substance: POLYETHYLENE GLYCOLS
     Indication: ABNORMAL FAECES
  6. OXAZEPAM. [Concomitant]
     Active Substance: OXAZEPAM
     Indication: PRODUCT USED FOR UNKNOWN INDICATION
     Dosage: 2 OR 3 TIMES A DAY
  7. DUODOPA [Suspect]
     Active Substance: CARBIDOPA\LEVODOPA
     Indication: PARKINSON^S DISEASE
     Dosage: MD 8.0, CD 3.5, ED 1.0
     Route: 050
     Dates: start: 20161219
  8. DUODOPA [Suspect]
     Active Substance: CARBIDOPA\LEVODOPA
     Dosage: DOSE INCREASED, ED 1.5 ML, MD 8.0 CD 3.4 ED 1.5 REMAINS AT 16 HOURS
     Route: 050
  9. SYMMETREL [Concomitant]
     Active Substance: AMANTADINE HYDROCHLORIDE
     Indication: PRODUCT USED FOR UNKNOWN INDICATION
     Dates: start: 202008
  10. DUODOPA [Suspect]
     Active Substance: CARBIDOPA\LEVODOPA
     Dosage: DOSE DECREASED
     Route: 050

REACTIONS (46)
  - Musculoskeletal discomfort [Not Recovered/Not Resolved]
  - Bradykinesia [Recovered/Resolved]
  - Stoma site pain [Recovered/Resolved]
  - Feeling abnormal [Recovering/Resolving]
  - Dyspnoea [Not Recovered/Not Resolved]
  - Disturbance in attention [Not Recovered/Not Resolved]
  - Memory impairment [Not Recovered/Not Resolved]
  - Disturbance in attention [Recovered/Resolved]
  - Decreased appetite [Recovered/Resolved]
  - Bradykinesia [Recovered/Resolved]
  - Freezing phenomenon [Recovered/Resolved]
  - Mobility decreased [Not Recovered/Not Resolved]
  - Tension [Not Recovered/Not Resolved]
  - Cognitive disorder [Not Recovered/Not Resolved]
  - Abnormal dreams [Recovered/Resolved]
  - Musculoskeletal chest pain [Recovered/Resolved]
  - Nocturia [Not Recovered/Not Resolved]
  - Dyskinesia [Recovered/Resolved]
  - Drug ineffective [Recovering/Resolving]
  - Abnormal dreams [Not Recovered/Not Resolved]
  - Memory impairment [Unknown]
  - Nightmare [Not Recovered/Not Resolved]
  - Bradykinesia [Not Recovered/Not Resolved]
  - Discomfort [Recovering/Resolving]
  - Enteral nutrition [Unknown]
  - Weight increased [Not Recovered/Not Resolved]
  - Abdominal pain [Recovered/Resolved]
  - Gastrointestinal tube insertion [Unknown]
  - Osteoporosis [Unknown]
  - Dyskinesia [Not Recovered/Not Resolved]
  - Hallucination [Not Recovered/Not Resolved]
  - On and off phenomenon [Not Recovered/Not Resolved]
  - Stoma site erythema [Recovered/Resolved]
  - Aphasia [Recovered/Resolved]
  - Malaise [Not Recovered/Not Resolved]
  - Cataract [Unknown]
  - Fibroma [Recovered/Resolved]
  - Muscle rigidity [Recovered/Resolved]
  - Loss of personal independence in daily activities [Not Recovered/Not Resolved]
  - Malaise [Recovered/Resolved]
  - Dyspnoea [Recovered/Resolved]
  - Fatigue [Not Recovered/Not Resolved]
  - Hallucination, visual [Recovered/Resolved]
  - Nausea [Not Recovered/Not Resolved]
  - Emotional disorder [Not Recovered/Not Resolved]
  - Fine motor skill dysfunction [Not Recovered/Not Resolved]

NARRATIVE: CASE EVENT DATE: 2019
